FAERS Safety Report 7621999-6 (Version None)
Quarter: 2011Q3

REPORT INFORMATION
  Report Type: 
  Country: None (occurrence: None)
  Receive Date: 20110720
  Receipt Date: 20100909
  Transmission Date: 20111222
  Serious: Yes (Other)
  Sender: FDA-Public Use
  Company Number: US-BAYER-201021923NA

PATIENT
  Age: 22 Year
  Sex: Female
  Weight: 63.492 kg

DRUGS (4)
  1. MAXALT-MLT [Concomitant]
     Dosage: 10 MG, UNK
     Route: 048
  2. YASMIN [Suspect]
     Indication: CONTRACEPTION
     Dosage: UNK UNK, UNK
     Route: 048
     Dates: start: 20030501, end: 20080901
  3. DROSPIRENONE AND ETHINYL ESTRADIOL [Suspect]
     Indication: CONTRACEPTION
     Dosage: UNK
     Dates: start: 20081001, end: 20081101
  4. LEXAPRO [Concomitant]
     Dosage: 10 MG, UNK
     Route: 048

REACTIONS (7)
  - PAIN [None]
  - CHOLELITHIASIS [None]
  - CHOLECYSTITIS CHRONIC [None]
  - ANXIETY [None]
  - ABDOMINAL PAIN [None]
  - BILIARY DYSKINESIA [None]
  - EMOTIONAL DISTRESS [None]
